FAERS Safety Report 14512931 (Version 2)
Quarter: 2018Q1

REPORT INFORMATION
  Report Type: Spontaneous
  Country: US (occurrence: US)
  Receive Date: 20180209
  Receipt Date: 20180329
  Transmission Date: 20180509
  Serious: No
  Sender: FDA-Public Use
  Company Number: US-GREER LABORATORIES, INC.-2041712

PATIENT
  Age: 58 Year
  Sex: Female

DRUGS (10)
  1. POLLENS - TREES, MAPLE, HARD ACER SACCHARUM [Concomitant]
     Active Substance: ACER SACCHARUM POLLEN
     Route: 058
  2. POLLENS - WEEDS AND GARDEN PLANTS, SAGEBRUSH, MUGWORT ARTEMISIA VULGARIS [Concomitant]
     Active Substance: ARTEMISIA VULGARIS POLLEN
     Route: 058
     Dates: start: 20180122
  3. FLONASE [Concomitant]
     Active Substance: FLUTICASONE PROPIONATE
     Route: 045
  4. STANDARDIZED MITE, DERMATOPHAGOIDES PTERONYSSINUS [Concomitant]
     Active Substance: DERMATOPHAGOIDES PTERONYSSINUS
     Route: 058
     Dates: start: 20180122
  5. STANDARDIZED MITE, DERMATOPHAGOIDES FARINAE [Concomitant]
     Active Substance: DERMATOPHAGOIDES FARINAE
     Route: 058
     Dates: start: 20180122
  6. POLLENS - TREES, BIRCH, BLACK/SWEET, BETULA LENTA [Suspect]
     Active Substance: BETULA LENTA POLLEN
     Indication: RHINITIS ALLERGIC
     Route: 058
  7. POLLENS - TREES, GS EASTERN OAK MIX [Concomitant]
     Active Substance: QUERCUS ALBA POLLEN\QUERCUS RUBRA POLLEN\QUERCUS VELUTINA POLLEN
     Route: 058
  8. POLLENS - GRASSES, GS K-O-R-T + SWEET VERNAL MIX [Concomitant]
     Route: 058
  9. ZYRTEC [Concomitant]
     Active Substance: CETIRIZINE HYDROCHLORIDE
     Route: 048
  10. POLLENS - WEEDS AND GARDEN PLANTS, RAGWEED, MIXED AMBROSIA [Concomitant]
     Active Substance: AMBROSIA ARTEMISIIFOLIA POLLEN\AMBROSIA TRIFIDA POLLEN
     Route: 058

REACTIONS (1)
  - Hypersensitivity [Recovered/Resolved]

NARRATIVE: CASE EVENT DATE: 20180122
